FAERS Safety Report 5251758-3 (Version None)
Quarter: 2007Q1

REPORT INFORMATION
  Report Type: 
  Country: None (occurrence: None)
  Receive Date: 20070228
  Receipt Date: 20061026
  Transmission Date: 20070707
  Serious: No
  Sender: FDA-Public Use
  Company Number: US-GLAXOSMITHKLINE-A0625055A

PATIENT
  Age: 56 Year
  Sex: Female

DRUGS (6)
  1. LAMICTAL [Suspect]
     Indication: BIPOLAR DISORDER
     Dosage: 25MG VARIABLE DOSE
     Route: 048
     Dates: start: 20060929
  2. DEPAKOTE [Concomitant]
  3. PROZAC [Concomitant]
  4. ALPRAZOLAM [Concomitant]
  5. DIOVAN [Concomitant]
  6. TOPROL-XL [Concomitant]

REACTIONS (2)
  - ERYTHEMA [None]
  - PRURITUS [None]
